FAERS Safety Report 12876378 (Version 1)
Quarter: 2016Q4

REPORT INFORMATION
  Report Type: Spontaneous
  Country: US (occurrence: US)
  Receive Date: 20161021
  Receipt Date: 20161021
  Transmission Date: 20170207
  Serious: Yes (Other)
  Sender: FDA-Public Use
  Company Number: None

PATIENT
  Age: 39 Year
  Sex: Female
  Weight: 54 kg

DRUGS (1)
  1. RESTASIS [Suspect]
     Active Substance: CYCLOSPORINE
     Indication: DRY EYE
     Dosage: 60 VIALS TWICE A DAY OPHTHALMIC?
     Route: 047
     Dates: start: 20161007, end: 20161021

REACTIONS (9)
  - Burning sensation [None]
  - Rhinorrhoea [None]
  - Therapy cessation [None]
  - Vision blurred [None]
  - Swelling face [None]
  - Dry eye [None]
  - Erythema [None]
  - Product colour issue [None]
  - Liquid product physical issue [None]

NARRATIVE: CASE EVENT DATE: 20161008
